FAERS Safety Report 16540517 (Version 1)
Quarter: 2019Q3

REPORT INFORMATION
  Report Type: Spontaneous
  Country: US (occurrence: US)
  Receive Date: 20190708
  Receipt Date: 20190708
  Transmission Date: 20191004
  Serious: No
  Sender: FDA-Public Use
  Company Number: US-SA-2019SA064123

PATIENT
  Age: 52 Year
  Sex: Female

DRUGS (1)
  1. ALIROCUMAB [Suspect]
     Active Substance: ALIROCUMAB
     Indication: BLOOD CHOLESTEROL INCREASED
     Dosage: UNK UNK, QOW

REACTIONS (11)
  - Oropharyngeal pain [Unknown]
  - Malaise [Unknown]
  - Decreased appetite [Unknown]
  - Pain [Unknown]
  - Influenza [Unknown]
  - Chills [Unknown]
  - Dizziness [Unknown]
  - Injection site pain [Recovered/Resolved]
  - Injection site erythema [Recovering/Resolving]
  - Nightmare [Unknown]
  - Headache [Unknown]

NARRATIVE: CASE EVENT DATE: 201906
